FAERS Safety Report 7416571-7 (Version None)
Quarter: 2011Q2

REPORT INFORMATION
  Report Type: 
  Country: None (occurrence: None)
  Receive Date: 20110415
  Receipt Date: 20110407
  Transmission Date: 20111010
  Serious: Yes (Other)
  Sender: FDA-Public Use
  Company Number: NL-AMGEN-NLDSP2011019227

PATIENT
  Age: 74 Year
  Sex: Female

DRUGS (5)
  1. MTX                                /00113802/ [Concomitant]
     Dosage: UNK
  2. ENBREL [Suspect]
     Indication: PSORIATIC ARTHROPATHY
     Dosage: 50 MG, WEEKLY
     Dates: start: 20110321
  3. METFORMIN [Concomitant]
     Dosage: 50 MG, WEEKLY
  4. VERAPAMIL [Concomitant]
     Dosage: UNK
  5. FOLIC ACID [Concomitant]
     Dosage: UNK

REACTIONS (1)
  - THERMAL BURN [None]
